FAERS Safety Report 14053851 (Version 1)
Quarter: 2017Q4

REPORT INFORMATION
  Report Type: Spontaneous
  Country: US (occurrence: None)
  Receive Date: 20171006
  Receipt Date: 20171006
  Transmission Date: 20180321
  Serious: No
  Sender: FDA-Public Use
  Company Number: None

PATIENT
  Sex: Female
  Weight: 63.05 kg

DRUGS (1)
  1. PROLIA [Suspect]
     Active Substance: DENOSUMAB
     Dosage: 60MG Q 6MO SUBQ
     Route: 058
     Dates: start: 201705

REACTIONS (6)
  - Skin injury [None]
  - Tooth fracture [None]
  - Cellulitis [None]
  - Contusion [None]
  - Tooth infection [None]
  - Impaired healing [None]
